FAERS Safety Report 5150924-5 (Version None)
Quarter: 2006Q4

REPORT INFORMATION
  Report Type: 
  Country: None (occurrence: None)
  Receive Date: 20061114
  Receipt Date: 20061108
  Transmission Date: 20070319
  Serious: Yes (Other)
  Sender: FDA-Public Use
  Company Number: US-MERCK-0611USA02969

PATIENT
  Sex: Male

DRUGS (1)
  1. MEVACOR [Suspect]
     Route: 048

REACTIONS (2)
  - CONVULSION [None]
  - MEMORY IMPAIRMENT [None]
